FAERS Safety Report 8290690-8 (Version None)
Quarter: 2012Q2

REPORT INFORMATION
  Report Type: 
  Country: None (occurrence: None)
  Receive Date: 20120417
  Receipt Date: 20110520
  Transmission Date: 20120825
  Serious: No
  Sender: FDA-Public Use
  Company Number: US-ASTRAZENECA-2011SE31484

PATIENT
  Age: 63 Year
  Sex: Female
  Weight: 49.9 kg

DRUGS (3)
  1. NEXIUM [Suspect]
     Indication: GASTROOESOPHAGEAL REFLUX DISEASE
     Route: 048
     Dates: start: 20110510
  2. OMEPRAZOLE [Suspect]
     Route: 048
  3. SIMVASTATIN [Concomitant]
     Indication: HYPERCHOLESTEROLAEMIA

REACTIONS (6)
  - ADVERSE EVENT [None]
  - NIGHT SWEATS [None]
  - PRURITUS [None]
  - ABDOMINAL PAIN [None]
  - TONGUE DISORDER [None]
  - INSOMNIA [None]
